FAERS Safety Report 4290138-4 (Version None)
Quarter: 2004Q1

REPORT INFORMATION
  Report Type: 
  Country: None (occurrence: None)
  Receive Date: 20040209
  Receipt Date: 20031105
  Transmission Date: 20041129
  Serious: Yes (Life-Threatening, Hospitalization)
  Sender: FDA-Public Use
  Company Number: USA031050567

PATIENT
  Age: 80 Year
  Sex: Female

DRUGS (4)
  1. EVISTA [Suspect]
     Dates: start: 20001109, end: 20031001
  2. DYAZIDE [Concomitant]
  3. ZANTAC [Concomitant]
  4. POTASSIUM [Concomitant]

REACTIONS (2)
  - DEEP VEIN THROMBOSIS [None]
  - PULMONARY EMBOLISM [None]
